FAERS Safety Report 8612154-1 (Version None)
Quarter: 2012Q3

REPORT INFORMATION
  Report Type: 
  Country: None (occurrence: None)
  Receive Date: 20120822
  Receipt Date: 20120814
  Transmission Date: 20120928
  Serious: Yes (Other)
  Sender: FDA-Public Use
  Company Number: GB-ABBOTT-09P-167-0595003-00

PATIENT
  Age: 40 Year
  Sex: Male

DRUGS (11)
  1. DULOXETINE HYDROCHLORIDE [Suspect]
     Indication: PRODUCT USED FOR UNKNOWN INDICATION
     Dosage: 60 MG DAILY
     Route: 065
  2. RISPERIDONE [Suspect]
     Indication: PRODUCT USED FOR UNKNOWN INDICATION
     Dosage: 4 MG DAILY
  3. EFFEXOR [Concomitant]
     Indication: DEPRESSION
     Route: 048
  4. MIRTAZAPINE [Suspect]
     Indication: AFFECTIVE DISORDER
  5. ARIPIPRAZOLE [Suspect]
     Indication: METABOLIC SYNDROME
     Route: 048
     Dates: start: 20080415
  6. LITHIUM CARBONATE [Concomitant]
     Indication: PRODUCT USED FOR UNKNOWN INDICATION
     Route: 048
  7. VALPROATE SODIUM [Suspect]
     Indication: PRODUCT USED FOR UNKNOWN INDICATION
     Route: 065
     Dates: start: 20080301
  8. QUETIAPINE FUMARATE [Suspect]
     Indication: AFFECTIVE DISORDER
  9. DRUG USED IN DIABETES [Concomitant]
     Indication: TYPE 2 DIABETES MELLITUS
     Route: 048
     Dates: start: 20081201
  10. ARIPIPRAZOLE [Suspect]
     Indication: SCHIZOAFFECTIVE DISORDER
     Route: 065
  11. DULOXETINE HYDROCHLORIDE [Suspect]
     Route: 065

REACTIONS (3)
  - LIVER FUNCTION TEST ABNORMAL [None]
  - METABOLIC SYNDROME [None]
  - HYPOTHYROIDISM [None]
